FAERS Safety Report 15037910 (Version 1)
Quarter: 2018Q2

REPORT INFORMATION
  Report Type: Report from Study
  Country: CA (occurrence: CA)
  Receive Date: 20180620
  Receipt Date: 20180620
  Transmission Date: 20180711
  Serious: Yes (Other)
  Sender: FDA-Public Use
  Company Number: PHHY2018CA001510

PATIENT
  Sex: Male

DRUGS (3)
  1. PREDNISONE. [Concomitant]
     Active Substance: PREDNISONE
     Indication: PRODUCT USED FOR UNKNOWN INDICATION
     Route: 065
  2. JADENU [Suspect]
     Active Substance: DEFERASIROX
     Indication: APLASIA PURE RED CELL
     Dosage: 1440 MG, QD
     Route: 048
     Dates: start: 20180427
  3. PANTOPRAZOLE [Concomitant]
     Active Substance: PANTOPRAZOLE
     Indication: PRODUCT USED FOR UNKNOWN INDICATION
     Route: 065

REACTIONS (11)
  - Renal impairment [Unknown]
  - Stomach mass [Unknown]
  - Abnormal faeces [Unknown]
  - Serum ferritin decreased [Unknown]
  - Diabetes mellitus [Unknown]
  - Dysgeusia [Unknown]
  - Decreased appetite [Unknown]
  - Diarrhoea [Unknown]
  - Haemoglobin decreased [Unknown]
  - Constipation [Unknown]
  - Fatigue [Unknown]
